FAERS Safety Report 8512559-3 (Version None)
Quarter: 2012Q3

REPORT INFORMATION
  Report Type: 
  Country: None (occurrence: None)
  Receive Date: 20120716
  Receipt Date: 20120712
  Transmission Date: 20120928
  Serious: Yes (Hospitalization)
  Sender: FDA-Public Use
  Company Number: US-ALLERGAN-1004499US

PATIENT
  Age: 3 Year
  Sex: Male
  Weight: 10 kg

DRUGS (6)
  1. BACLOFEN [Concomitant]
     Indication: MUSCLE SPASTICITY
     Dosage: 5 MG, UNK
     Route: 048
     Dates: start: 20090101
  2. PHENOL [Suspect]
     Indication: NEUROLYSIS
     Dosage: 6 ML, SINGLE
     Route: 030
     Dates: start: 20100329, end: 20100329
  3. BOTULINUM TOXIN TYPE A [Suspect]
     Indication: MUSCLE SPASTICITY
     Dosage: 200 UNITS, SINGLE
     Route: 030
     Dates: start: 20100329, end: 20100329
  4. BOTULINUM TOXIN TYPE A [Suspect]
     Indication: LEUKODYSTROPHY
  5. MIRALAX [Concomitant]
     Indication: CONSTIPATION
     Route: 048
  6. VERSED [Concomitant]
     Indication: SEDATION
     Dosage: 3.5 MG, SINGLE
     Route: 054
     Dates: start: 20100329, end: 20100329

REACTIONS (11)
  - DEPRESSED LEVEL OF CONSCIOUSNESS [None]
  - HYPOGLYCAEMIA [None]
  - HYPOTONIA [None]
  - HYPOREFLEXIA [None]
  - LETHARGY [None]
  - LYMPHOEDEMA [None]
  - RESPIRATORY FAILURE [None]
  - ASTHENIA [None]
  - HYPOPHAGIA [None]
  - CONVULSION [None]
  - BOTULISM [None]
